FAERS Safety Report 5311640-X (Version None)
Quarter: 2007Q2

REPORT INFORMATION
  Report Type: 
  Country: None (occurrence: None)
  Receive Date: 20070430
  Receipt Date: 20060410
  Transmission Date: 20071010
  Serious: No
  Sender: FDA-Public Use
  Company Number: 2006UW03806

PATIENT
  Age: 60 Year
  Sex: Female
  Weight: 72.6 kg

DRUGS (3)
  1. ZOMIG [Suspect]
     Indication: MIGRAINE
     Route: 048
     Dates: start: 19970101
  2. ATENOLOL [Concomitant]
  3. EXCEDRIN (MIGRAINE) [Concomitant]

REACTIONS (6)
  - APHASIA [None]
  - DEAFNESS [None]
  - DIZZINESS [None]
  - HEMIANOPIA [None]
  - HYPERAESTHESIA [None]
  - MIGRAINE WITH AURA [None]
